FAERS Safety Report 9543598 (Version 1)
Quarter: 2013Q3

REPORT INFORMATION
  Report Type: Spontaneous
  Country: IT (occurrence: IT)
  Receive Date: 20130923
  Receipt Date: 20130923
  Transmission Date: 20140515
  Serious: Yes (Other)
  Sender: FDA-Public Use
  Company Number: IT-TEVA-433497ISR

PATIENT
  Age: 56 Year
  Sex: Male

DRUGS (3)
  1. IRINOTECAN [Suspect]
     Indication: COLON NEOPLASM
     Dosage: 200 MILLIGRAM DAILY;
     Route: 042
  2. FLUOROURACILE [Concomitant]
  3. ACIDO LEVO FOLINICO [Concomitant]

REACTIONS (2)
  - Hyperpyrexia [Recovered/Resolved]
  - Chills [Recovered/Resolved]
